FAERS Safety Report 21369848 (Version 1)
Quarter: 2022Q3

REPORT INFORMATION
  Report Type: Spontaneous
  Country: US (occurrence: US)
  Receive Date: 20220923
  Receipt Date: 20220923
  Transmission Date: 20221027
  Serious: Yes (Hospitalization)
  Sender: FDA-Public Use
  Company Number: US-MYLANLABS-2022M1095672

PATIENT
  Age: 15 Year
  Sex: Female
  Weight: 41.1 kg

DRUGS (3)
  1. WARFARIN [Suspect]
     Active Substance: WARFARIN
     Indication: Product used for unknown indication
     Dosage: UNK, INGESTED 20 TO 40 (TOTALING 100 TO 200MG) ?..
     Route: 048
  2. VITAMIN K1 [Suspect]
     Active Substance: PHYTONADIONE
     Indication: International normalised ratio increased
     Dosage: 2.5 MILLIGRAM
     Route: 048
  3. SERTRALINE [Concomitant]
     Active Substance: SERTRALINE HYDROCHLORIDE
     Indication: Depression
     Dosage: UNK
     Route: 065

REACTIONS (5)
  - Overdose [Recovered/Resolved]
  - Haematoma [Recovered/Resolved]
  - International normalised ratio increased [Recovered/Resolved]
  - Suicide attempt [Recovered/Resolved]
  - Intentional product misuse [Recovered/Resolved]
